FAERS Safety Report 21641558 (Version 1)
Quarter: 2022Q4

REPORT INFORMATION
  Report Type: Spontaneous
  Country: US (occurrence: US)
  Receive Date: 20221125
  Receipt Date: 20221125
  Transmission Date: 20230112
  Serious: Yes (Other)
  Sender: FDA-Public Use
  Company Number: US-ABBVIE-4214123

PATIENT
  Sex: Female

DRUGS (1)
  1. HUMIRA [Suspect]
     Active Substance: ADALIMUMAB
     Indication: Crohn^s disease
     Route: 058
     Dates: start: 2020

REACTIONS (14)
  - Colon cancer [Unknown]
  - Crohn^s disease [Unknown]
  - Pain [Unknown]
  - Nausea [Unknown]
  - Adverse drug reaction [Unknown]
  - Constipation [Unknown]
  - Drug ineffective [Unknown]
  - Diarrhoea [Unknown]
  - Inflammation [Unknown]
  - Oesophagitis [Unknown]
  - Chronic gastritis [Unknown]
  - Post-traumatic stress disorder [Unknown]
  - Small intestine carcinoma [Unknown]
  - Gastric cancer [Unknown]
